FAERS Safety Report 5413976-0 (Version None)
Quarter: 2007Q3

REPORT INFORMATION
  Report Type: 
  Country: None (occurrence: None)
  Receive Date: 20070814
  Receipt Date: 20070802
  Transmission Date: 20080115
  Serious: Yes (Other)
  Sender: FDA-Public Use
  Company Number: US-ELI_LILLY_AND_COMPANY-US200707003077

PATIENT
  Age: 60 Year
  Sex: Female

DRUGS (8)
  1. CYMBALTA [Suspect]
     Indication: DEPRESSION
     Dosage: 30 MG, UNK
     Dates: start: 20070401, end: 20070621
  2. CYMBALTA [Suspect]
     Dosage: 60 MG, DAILY (1/D)
     Dates: start: 20070622
  3. LEVOXYL [Concomitant]
     Dosage: 100 UG, UNK
  4. LOTREL [Concomitant]
  5. GLUCOTROL XL [Concomitant]
     Dosage: 10 MG OR 15 MG
  6. ALLOPURINOL [Concomitant]
  7. TRAZODONE HCL [Concomitant]
     Indication: SLEEP DISORDER
  8. METFORMIN HCL [Concomitant]
     Dosage: 1000 UNK, UNK

REACTIONS (9)
  - BLOOD GLUCOSE FLUCTUATION [None]
  - BLOOD GLUCOSE INCREASED [None]
  - DIZZINESS [None]
  - DYSPHAGIA [None]
  - GLYCOSYLATED HAEMOGLOBIN INCREASED [None]
  - HEADACHE [None]
  - HYPERTENSION [None]
  - HYPOAESTHESIA [None]
  - STRESS [None]
